FAERS Safety Report 9574904 (Version 1)
Quarter: 2013Q4

REPORT INFORMATION
  Report Type: Report from Study
  Country: DE (occurrence: DE)
  Receive Date: 20131001
  Receipt Date: 20131001
  Transmission Date: 20140711
  Serious: Yes (Hospitalization)
  Sender: FDA-Public Use
  Company Number: DE-TEVA-434746GER

PATIENT
  Sex: Female

DRUGS (12)
  1. DOXORUBICIN [Suspect]
     Indication: B-CELL LYMPHOMA
     Route: 042
     Dates: start: 20130716
  2. PREDNISOLONE [Suspect]
     Indication: B-CELL LYMPHOMA
     Route: 048
     Dates: start: 20130716
  3. FILGRASTIM [Suspect]
     Indication: B-CELL LYMPHOMA
     Dosage: 30 MIO
     Route: 058
     Dates: start: 20130719
  4. FILGRASTIM [Suspect]
     Dosage: 30 MIO
     Route: 058
     Dates: start: 20130905
  5. RITUXIMAB [Suspect]
     Indication: B-CELL LYMPHOMA
     Route: 042
     Dates: start: 20130710
  6. CYCLOPHOSPHAMIDE [Suspect]
     Indication: B-CELL LYMPHOMA
     Route: 042
     Dates: start: 20130716
  7. LIPOSOMAL VINCRISTINE [Suspect]
     Indication: B-CELL LYMPHOMA
     Route: 042
     Dates: start: 20130716
  8. SULFAMETHOXAZOL/TRIMETHOPRIM [Concomitant]
     Route: 048
     Dates: start: 20130703
  9. ACICLOVIR [Concomitant]
     Route: 048
     Dates: start: 20130713
  10. LEVOTHYROXINE NATRIUM [Concomitant]
     Indication: HYPOTHYROIDISM
     Dosage: 100 MICROGRAM DAILY;
     Route: 048
     Dates: start: 20130101
  11. BISOPROLOL [Concomitant]
     Indication: HYPERTENSION
     Route: 048
     Dates: start: 20130101
  12. PANTOPRAZOL NATRIUM [Concomitant]
     Dosage: 40 MILLIGRAM DAILY;
     Route: 048
     Dates: start: 20130703

REACTIONS (1)
  - Peripheral motor neuropathy [Not Recovered/Not Resolved]
